FAERS Safety Report 24086851 (Version 1)
Quarter: 2024Q3

REPORT INFORMATION
  Report Type: Spontaneous
  Country: GR (occurrence: GR)
  Receive Date: 20240713
  Receipt Date: 20240713
  Transmission Date: 20241016
  Serious: Yes (Other)
  Sender: BAXTER
  Company Number: GR-BAXTER-2024BAX020848

PATIENT
  Sex: Female

DRUGS (1)
  1. SUPRANE [Suspect]
     Active Substance: DESFLURANE
     Dosage: UNK, OCULAR EXPOSURE (LIQUID FOR INHALED VAPOOUR)
     Dates: start: 20240627, end: 20240627

REACTIONS (13)
  - Punctate keratitis [Recovering/Resolving]
  - Blindness transient [Recovering/Resolving]
  - Eye irritation [Recovering/Resolving]
  - Ocular hyperaemia [Recovering/Resolving]
  - Vision blurred [Recovering/Resolving]
  - Swelling of eyelid [Recovering/Resolving]
  - Dry eye [Recovering/Resolving]
  - Oral disorder [Recovering/Resolving]
  - Occupational exposure to product [Unknown]
  - Oral pain [Recovering/Resolving]
  - Headache [Recovering/Resolving]
  - Blood pressure increased [Recovering/Resolving]
  - Heart rate increased [Recovering/Resolving]

NARRATIVE: CASE EVENT DATE: 20240627
